FAERS Safety Report 4988619-0 (Version None)
Quarter: 2006Q2

REPORT INFORMATION
  Report Type: 
  Country: None (occurrence: None)
  Receive Date: 20060426
  Receipt Date: 20060410
  Transmission Date: 20061013
  Serious: No
  Sender: FDA-Public Use
  Company Number: JP200604002293

PATIENT
  Age: 45 Year
  Sex: Female

DRUGS (4)
  1. ZYPREXA [Suspect]
     Indication: SCHIZOPHRENIA
     Dosage: SEE IMAGE
     Route: 048
  2. RISPERIDONE [Suspect]
     Indication: SCHIZOPHRENIA
     Dosage: 10 MG, DAILY (1/D), ORAL
     Route: 048
  3. LODOPIN (ZOTEPINE) [Concomitant]
  4. RIVOTRIL /NOR/ (CLONAZEPAM) [Concomitant]

REACTIONS (1)
  - NEUTROPHIL COUNT DECREASED [None]
